FAERS Safety Report 6171171-4 (Version None)
Quarter: 2009Q2

REPORT INFORMATION
  Report Type: 
  Country: None (occurrence: None)
  Receive Date: 20090429
  Receipt Date: 20090417
  Transmission Date: 20091009
  Serious: Yes (Other)
  Sender: FDA-Public Use
  Company Number: BE-ELI_LILLY_AND_COMPANY-BE200811004557

PATIENT
  Sex: Female

DRUGS (6)
  1. CYMBALTA [Suspect]
     Indication: FIBROMYALGIA
     Dosage: 60 MG, DAILY (1/D)
     Route: 048
  2. CYMBALTA [Suspect]
     Dosage: 30 MG, DAILY (1/D)
     Route: 048
  3. TOPAMAX [Concomitant]
     Indication: PAIN
     Dosage: 50 MG, 2/D
     Route: 065
  4. ISOPTIN [Concomitant]
     Dosage: 80 MG, DAILY (1/D)
     Route: 065
  5. OMEPRAZOLE [Concomitant]
     Indication: OESOPHAGITIS
     Dosage: 20 MG, DAILY (1/D)
     Route: 065
  6. DAFALGAN [Concomitant]

REACTIONS (4)
  - AMENORRHOEA [None]
  - BREAST PAIN [None]
  - GALACTORRHOEA [None]
  - HYPERPROLACTINAEMIA [None]
